FAERS Safety Report 6444530-X (Version None)
Quarter: 2009Q4

REPORT INFORMATION
  Report Type: 
  Country: None (occurrence: None)
  Receive Date: 20091118
  Receipt Date: 20090617
  Transmission Date: 20100525
  Serious: Yes (Hospitalization, Other)
  Sender: FDA-Public Use
  Company Number: US-NOVOPROD-288424

PATIENT
  Sex: Male

DRUGS (4)
  1. PRANDIN [Suspect]
     Indication: INSULIN-REQUIRING TYPE 2 DIABETES MELLITUS
     Dosage: UNKNOWN (BEFORE MEALS)
     Route: 048
  2. ACTOS [Suspect]
     Indication: INSULIN-REQUIRING TYPE 2 DIABETES MELLITUS
     Dosage: 45 MG,(45MG, 1-2) 10MG/1000MG
     Route: 048
     Dates: start: 20090508, end: 20090603
  3. JANUVIA [Suspect]
     Indication: INSULIN-REQUIRING TYPE 2 DIABETES MELLITUS
     Dosage: UNKNOWN
     Route: 048
  4. GLUCOVANCE [Suspect]
     Indication: INSULIN-REQUIRING TYPE 2 DIABETES MELLITUS
     Dosage: 5MG/500MG, BID
     Route: 048

REACTIONS (1)
  - HYPOGLYCAEMIC UNCONSCIOUSNESS [None]
